FAERS Safety Report 17763124 (Version 1)
Quarter: 2020Q2

REPORT INFORMATION
  Report Type: Not Available
  Country: US (occurrence: US)
  Receive Date: 20200508
  Receipt Date: 20200508
  Transmission Date: 20200714
  Serious: Yes (Death, Hospitalization, Other)
  Sender: FDA-Public Use
  Company Number: US-NEUROCRINE BIOSCIENCES INC.-2020NBI01459

PATIENT
  Age: 78 Year
  Sex: Female

DRUGS (5)
  1. LAMICTAL [Concomitant]
     Active Substance: LAMOTRIGINE
  2. INGREZZA [Suspect]
     Active Substance: VALBENAZINE
     Indication: TARDIVE DYSKINESIA
     Route: 048
     Dates: start: 20191206
  3. SEROQUEL [Concomitant]
     Active Substance: QUETIAPINE FUMARATE
  4. RISPERIDONE. [Concomitant]
     Active Substance: RISPERIDONE
  5. INGREZZA [Suspect]
     Active Substance: VALBENAZINE
     Indication: MENTAL DISORDER

REACTIONS (6)
  - Off label use [Unknown]
  - Aspiration [Fatal]
  - Loss of consciousness [Unknown]
  - General physical health deterioration [Unknown]
  - Urinary tract infection [Unknown]
  - Sepsis [Unknown]

NARRATIVE: CASE EVENT DATE: 20191206
